FAERS Safety Report 15594208 (Version 2)
Quarter: 2018Q4

REPORT INFORMATION
  Report Type: Spontaneous
  Country: US (occurrence: US)
  Receive Date: 20181106
  Receipt Date: 20181108
  Transmission Date: 20190205
  Serious: No
  Sender: FDA-Public Use
  Company Number: US-PFIZER INC-2018452440

PATIENT
  Age: 64 Year
  Sex: Male
  Weight: 104.3 kg

DRUGS (1)
  1. CELEBREX [Suspect]
     Active Substance: CELECOXIB
     Indication: RHEUMATOID ARTHRITIS
     Dosage: 200 MG, 2X/DAY
     Route: 048

REACTIONS (4)
  - Gait disturbance [Unknown]
  - Device issue [Unknown]
  - Arthralgia [Unknown]
  - Infection [Recovered/Resolved]
